FAERS Safety Report 10060414 (Version 3)
Quarter: 2014Q2

REPORT INFORMATION
  Report Type: Spontaneous
  Country: IT (occurrence: IT)
  Receive Date: 20140404
  Receipt Date: 20140623
  Transmission Date: 20141212
  Serious: Yes (Death, Hospitalization)
  Sender: FDA-Public Use
  Company Number: IT-ASTRAZENECA-2014SE22712

PATIENT
  Age: 34229 Day
  Sex: Female

DRUGS (5)
  1. ANTRA [Suspect]
     Indication: PROPHYLAXIS AGAINST GASTROINTESTINAL ULCER
     Route: 048
     Dates: start: 20130916, end: 20140311
  2. KLACID [Interacting]
     Indication: PNEUMONIA
     Route: 048
     Dates: start: 20140310, end: 20140311
  3. COUMADIN [Interacting]
     Indication: PULMONARY EMBOLISM
     Route: 048
     Dates: start: 20130916, end: 20140311
  4. LASIX [Concomitant]
     Route: 048
     Dates: end: 20140311
  5. DEURSIL [Concomitant]
     Route: 048
     Dates: end: 20140311

REACTIONS (3)
  - Drug interaction [Fatal]
  - Pleural effusion [Fatal]
  - International normalised ratio increased [Fatal]
